FAERS Safety Report 18902553 (Version 2)
Quarter: 2022Q3

REPORT INFORMATION
  Report Type: Other
  Country: None (occurrence: US)
  Receive Date: 20210216
  Receipt Date: 20220817
  Transmission Date: 20221027
  Serious: Yes (Death, Disabling)
  Sender: FDA-Public Use
  Company Number: US-NOSTRUM LABORATORIES, INC.-2106855

PATIENT

DRUGS (1)
  1. RANITIDINE HYDROCHLORIDE [Suspect]
     Active Substance: RANITIDINE HYDROCHLORIDE
     Indication: Product used for unknown indication
     Route: 048

REACTIONS (1)
  - Throat cancer [Fatal]
